FAERS Safety Report 23322480 (Version 1)
Quarter: 2023Q4

REPORT INFORMATION
  Report Type: Spontaneous
  Country: NL (occurrence: NL)
  Receive Date: 20231220
  Receipt Date: 20231220
  Transmission Date: 20240110
  Serious: Yes (Congenital Anomaly)
  Sender: FDA-Public Use
  Company Number: None

PATIENT
  Age: 0 Year

DRUGS (2)
  1. BUPROPION [Suspect]
     Active Substance: BUPROPION
     Indication: Depressed mood
     Dosage: 1 PIECE ONCE PER DAY,BUPROPION TABLET MGA 150MG / BRAND NAME NOT SPECIFIED
     Route: 065
     Dates: start: 20221213
  2. HUMAN IMMUNOGLOBULIN G [Suspect]
     Active Substance: HUMAN IMMUNOGLOBULIN G
     Indication: Selective polysaccharide antibody deficiency
     Dosage: 20G ONCE EVERY 4 WEEKS, IMMUNOGLOBULINE INF 100MG/ML + HYALURONIDASE / BRAND NAME NOT SPECIFIED
     Route: 065
     Dates: start: 20230123

REACTIONS (2)
  - Limb hypoplasia congenital [Unknown]
  - Maternal exposure during pregnancy [Unknown]
